FAERS Safety Report 19101119 (Version 4)
Quarter: 2021Q3

REPORT INFORMATION
  Report Type: Report from Study
  Country: BR (occurrence: BR)
  Receive Date: 20210407
  Receipt Date: 20210812
  Transmission Date: 20211014
  Serious: Yes (Other)
  Sender: FDA-Public Use
  Company Number: NVSC2021BR076687

PATIENT
  Age: 56 Year
  Sex: Female

DRUGS (4)
  1. COSENTYX [Suspect]
     Active Substance: SECUKINUMAB
     Indication: PSORIASIS
     Dosage: 1 DF, UNKNOWN
     Route: 065
     Dates: start: 20190214
  2. COSENTYX [Suspect]
     Active Substance: SECUKINUMAB
     Dosage: UNK
     Route: 065
     Dates: start: 20210518
  3. COSENTYX [Suspect]
     Active Substance: SECUKINUMAB
     Indication: RHEUMATOID ARTHRITIS
     Dosage: 1 DF, UNKNOWN
     Route: 065
  4. COSENTYX [Suspect]
     Active Substance: SECUKINUMAB
     Indication: PSORIATIC ARTHROPATHY
     Dosage: 2 DF, UNKNOWN
     Route: 065
     Dates: start: 20210313

REACTIONS (12)
  - Urticaria [Recovered/Resolved]
  - Gastrointestinal fungal infection [Recovering/Resolving]
  - Emotional disorder [Unknown]
  - Gastrointestinal candidiasis [Recovered/Resolved]
  - Product use in unapproved indication [Unknown]
  - Rheumatoid arthritis [Unknown]
  - Abdominal pain upper [Recovering/Resolving]
  - Fungal oesophagitis [Recovering/Resolving]
  - Decreased immune responsiveness [Unknown]
  - Stress [Unknown]
  - Hypersensitivity [Recovered/Resolved]
  - Gastritis [Unknown]

NARRATIVE: CASE EVENT DATE: 202106
